FAERS Safety Report 11713401 (Version 3)
Quarter: 2016Q2

REPORT INFORMATION
  Report Type: Spontaneous
  Country: JP (occurrence: JP)
  Receive Date: 20151109
  Receipt Date: 20160603
  Transmission Date: 20160815
  Serious: Yes (Hospitalization)
  Sender: FDA-Public Use
  Company Number: JP-ACCORD-035204

PATIENT
  Age: 66 Year
  Sex: Male
  Weight: 46.3 kg

DRUGS (7)
  1. LACTULOSE. [Concomitant]
     Active Substance: LACTULOSE
     Indication: GASTROINTESTINAL INFECTION
  2. POLYMYXIN B. [Concomitant]
     Active Substance: POLYMYXIN B
     Indication: GASTROINTESTINAL INFECTION
  3. CISPLATIN. [Suspect]
     Active Substance: CISPLATIN
     Indication: GASTRIC CANCER
  4. AMPHOTERICIN B/AMPHOTERICIN B/LIPOSOME [Concomitant]
     Indication: GASTROINTESTINAL INFECTION
  5. TS-1 [Suspect]
     Active Substance: GIMERACIL\OTERACIL\TEGAFUR
     Indication: GASTRIC CANCER
     Dosage: ESOPHAGEAL CANCER
  6. DOCETAXEL. [Suspect]
     Active Substance: DOCETAXEL
     Indication: GASTRIC CANCER
  7. KANAMYCIN [Concomitant]
     Active Substance: KANAMYCIN\KANAMYCIN A SULFATE
     Indication: GASTROINTESTINAL INFECTION

REACTIONS (4)
  - Septic shock [Recovered/Resolved]
  - Enteritis [Recovered/Resolved]
  - Bacterial translocation [Recovered/Resolved]
  - Disseminated intravascular coagulation [Recovered/Resolved]
